FAERS Safety Report 13132060 (Version 1)
Quarter: 2017Q1

REPORT INFORMATION
  Report Type: Spontaneous
  Country: US (occurrence: US)
  Receive Date: 20170119
  Receipt Date: 20170119
  Transmission Date: 20170428
  Serious: No
  Sender: FDA-Public Use
  Company Number: US-IMPAX LABORATORIES, INC-2016-IPXL-00766

PATIENT
  Sex: Male

DRUGS (1)
  1. BUPROPION XL [Suspect]
     Active Substance: BUPROPION
     Indication: PRODUCT USED FOR UNKNOWN INDICATION
     Dosage: 150 MG, UNK
     Route: 048

REACTIONS (4)
  - Headache [Recovered/Resolved]
  - Anxiety [Recovered/Resolved]
  - Product substitution issue [Unknown]
  - Insomnia [Recovered/Resolved]
